FAERS Safety Report 24903453 (Version 3)
Quarter: 2025Q1

REPORT INFORMATION
  Report Type: Report from Study
  Country: US (occurrence: US)
  Receive Date: 20250130
  Receipt Date: 20250321
  Transmission Date: 20250409
  Serious: No
  Sender: SUNOVION
  Company Number: US-SMPA-2025SPA000741AA

PATIENT

DRUGS (1)
  1. ORGOVYX [Suspect]
     Active Substance: RELUGOLIX
     Indication: Prostate cancer
     Dosage: 120 MG, QD
     Route: 048
     Dates: start: 20250123

REACTIONS (5)
  - Nocturia [Unknown]
  - Emotional disorder [Unknown]
  - Erectile dysfunction [Unknown]
  - Fatigue [Unknown]
  - Incorrect dose administered [Unknown]
